FAERS Safety Report 19465203 (Version 1)
Quarter: 2021Q2

REPORT INFORMATION
  Report Type: Spontaneous
  Country: US (occurrence: US)
  Receive Date: 20210624
  Receipt Date: 20210624
  Transmission Date: 20210717
  Serious: Yes (Other)
  Sender: FDA-Public Use
  Company Number: US-BRACCO-2021US00227

PATIENT
  Sex: Male

DRUGS (2)
  1. GLUCAGON. [Concomitant]
     Active Substance: GLUCAGON
     Dosage: 1 MG
     Route: 030
     Dates: start: 20210114, end: 20210114
  2. MULTIHANCE [Suspect]
     Active Substance: GADOBENATE DIMEGLUMINE
     Indication: MAGNETIC RESONANCE IMAGING
     Dosage: 20 ML, SINGLE
     Route: 042
     Dates: start: 20210114, end: 20210114

REACTIONS (8)
  - Foaming at mouth [Recovered/Resolved]
  - Pallor [Recovered/Resolved]
  - Unresponsive to stimuli [Recovered/Resolved]
  - Pruritus [Recovered/Resolved]
  - Heart rate increased [Recovered/Resolved]
  - Hyperhidrosis [Recovered/Resolved]
  - Tremor [Recovered/Resolved]
  - Rash erythematous [Recovered/Resolved]

NARRATIVE: CASE EVENT DATE: 20210114
